FAERS Safety Report 16428764 (Version 1)
Quarter: 2019Q2

REPORT INFORMATION
  Report Type: Spontaneous
  Country: US (occurrence: US)
  Receive Date: 20190613
  Receipt Date: 20190613
  Transmission Date: 20190711
  Serious: No
  Sender: FDA-Public Use
  Company Number: US-VIFOR (INTERNATIONAL) INC.-VIT-2019-04704

PATIENT
  Age: 87 Year
  Sex: Male

DRUGS (13)
  1. VELTASSA [Suspect]
     Active Substance: PATIROMER
     Indication: PRODUCT USED FOR UNKNOWN INDICATION
     Route: 048
     Dates: start: 201902
  2. ASPIRIN. [Concomitant]
     Active Substance: ASPIRIN
  3. CALCITRIOL. [Concomitant]
     Active Substance: CALCITRIOL
  4. FERROUS SULFATE. [Concomitant]
     Active Substance: FERROUS SULFATE
  5. BENADRYL [Concomitant]
     Active Substance: DIPHENHYDRAMINE HYDROCHLORIDE
  6. LABETALOL [Concomitant]
     Active Substance: LABETALOL\LABETALOL HYDROCHLORIDE
  7. LEVOTHYROXINE. [Concomitant]
     Active Substance: LEVOTHYROXINE
  8. VITAMIN D3 [Concomitant]
     Active Substance: CHOLECALCIFEROL
  9. SIMVASTATIN. [Concomitant]
     Active Substance: SIMVASTATIN
  10. FUROSEMIDE. [Concomitant]
     Active Substance: FUROSEMIDE
  11. WARFARIN [Concomitant]
     Active Substance: WARFARIN
  12. LOSARTAN. [Concomitant]
     Active Substance: LOSARTAN
  13. PROSTIDE [Concomitant]

REACTIONS (5)
  - Product colour issue [Unknown]
  - Product taste abnormal [Unknown]
  - Product dose omission [Unknown]
  - Inappropriate schedule of product administration [Unknown]
  - No adverse event [Unknown]

NARRATIVE: CASE EVENT DATE: 2019
